FAERS Safety Report 4930380-X (Version None)
Quarter: 2006Q1

REPORT INFORMATION
  Report Type: 
  Country: None (occurrence: None)
  Receive Date: 20060302
  Receipt Date: 20060220
  Transmission Date: 20060701
  Serious: Yes (Death, Hospitalization)
  Sender: FDA-Public Use
  Company Number: TR-GLAXOSMITHKLINE-B0413765A

PATIENT
  Age: 40 Year
  Sex: Male

DRUGS (1)
  1. SULFAMETHOXAZOLE + TRIMETHOPRIM [Suspect]
     Dosage: 480MG TWICE PER DAY
     Route: 048

REACTIONS (10)
  - ANAEMIA [None]
  - BLOOD DISORDER [None]
  - BODY TEMPERATURE INCREASED [None]
  - DERMATITIS EXFOLIATIVE [None]
  - FATIGUE [None]
  - FEBRILE NEUTROPENIA [None]
  - LEUKOPENIA [None]
  - ORAL CANDIDIASIS [None]
  - RASH MACULO-PAPULAR [None]
  - THROMBOCYTOPENIA [None]
